FAERS Safety Report 8868985 (Version 3)
Quarter: 2013Q1

REPORT INFORMATION
  Report Type: Spontaneous
  Country: US (occurrence: US)
  Receive Date: 20121027
  Receipt Date: 20130304
  Transmission Date: 20140127
  Serious: Yes (Hospitalization, Other)
  Sender: FDA-Public Use
  Company Number: US-009507513-1112USA01472

PATIENT
  Sex: Female
  Weight: 65.31 kg

DRUGS (3)
  1. FOSAMAX [Suspect]
     Indication: OSTEOPOROSIS
     Dosage: 10 MG, QD
     Route: 048
     Dates: start: 19960123, end: 200608
  2. FOSAMAX [Suspect]
     Dosage: 70 MG, QW
     Route: 048
     Dates: end: 200608
  3. FOSAMAX PLUS D [Suspect]
     Indication: OSTEOPOROSIS
     Dosage: 70 MG/2800IU, QW
     Route: 048
     Dates: start: 20060816, end: 200801

REACTIONS (42)
  - Femur fracture [Unknown]
  - Open reduction of fracture [Unknown]
  - Fall [Unknown]
  - Breast prosthesis removal [Unknown]
  - Hypophosphataemia [Unknown]
  - Thrombocytopenia [Unknown]
  - Malnutrition [Unknown]
  - Transfusion [Unknown]
  - Hyponatraemia [Unknown]
  - Pancytopenia [Unknown]
  - Anaemia of chronic disease [Not Recovered/Not Resolved]
  - Leukopenia [Unknown]
  - Rib fracture [Unknown]
  - Vitamin D deficiency [Recovering/Resolving]
  - Calcium deficiency [Recovered/Resolved]
  - Hypertension [Unknown]
  - Rib fracture [Unknown]
  - Orthostatic hypotension [Unknown]
  - Fall [Unknown]
  - Blood cholesterol increased [Unknown]
  - Pain in extremity [Not Recovered/Not Resolved]
  - Flank pain [Unknown]
  - Cystitis [Unknown]
  - Pubis fracture [Unknown]
  - Arthralgia [Not Recovered/Not Resolved]
  - Back pain [Unknown]
  - Osteopenia [Not Recovered/Not Resolved]
  - Polyneuropathy [Not Recovered/Not Resolved]
  - Fall [Unknown]
  - Constipation [Unknown]
  - Renal cyst [Unknown]
  - Renal cyst [Unknown]
  - Renal mass [Unknown]
  - Haemorrhoids [Unknown]
  - Hiatus hernia [Unknown]
  - Diverticulum [Unknown]
  - Pemphigus [Unknown]
  - VIIth nerve paralysis [Unknown]
  - Transient ischaemic attack [Unknown]
  - Cardiac murmur [Unknown]
  - Oesophageal discomfort [Unknown]
  - Anal fissure excision [Unknown]
